FAERS Safety Report 7297152-5 (Version None)
Quarter: 2011Q1

REPORT INFORMATION
  Report Type: 
  Country: None (occurrence: None)
  Receive Date: 20110216
  Receipt Date: 20110211
  Transmission Date: 20110831
  Serious: No
  Sender: FDA-Public Use
  Company Number: US-PFIZER INC-2011031539

PATIENT
  Sex: Female
  Weight: 90.703 kg

DRUGS (3)
  1. GEODON [Suspect]
     Indication: BIPOLAR DISORDER
     Dosage: UNK
     Route: 048
     Dates: start: 20101230
  2. LAMICTAL [Concomitant]
     Dosage: 250 MG, UNK
  3. CYMBALTA [Concomitant]
     Indication: BIPOLAR DISORDER
     Dosage: 30 MG, UNK

REACTIONS (3)
  - SOMNOLENCE [None]
  - MUSCLE SPASMS [None]
  - MYDRIASIS [None]
